FAERS Safety Report 16672949 (Version 1)
Quarter: 2019Q3

REPORT INFORMATION
  Report Type: Spontaneous
  Country: US (occurrence: US)
  Receive Date: 20190805
  Receipt Date: 20190805
  Transmission Date: 20191004
  Serious: No
  Sender: FDA-Public Use
  Company Number: None

PATIENT
  Sex: Female

DRUGS (2)
  1. VESICARE [Suspect]
     Active Substance: SOLIFENACIN SUCCINATE
  2. MYRBETRIQ [Suspect]
     Active Substance: MIRABEGRON

REACTIONS (3)
  - Treatment failure [None]
  - Micturition urgency [None]
  - Incontinence [None]
